FAERS Safety Report 6507031-6 (Version None)
Quarter: 2009Q4

REPORT INFORMATION
  Report Type: 
  Country: None (occurrence: None)
  Receive Date: 20091221
  Receipt Date: 20091214
  Transmission Date: 20100525
  Serious: Yes (Hospitalization)
  Sender: FDA-Public Use
  Company Number: GB-ROCHE-674801

PATIENT
  Sex: Male

DRUGS (4)
  1. CAPECITABINE [Suspect]
     Route: 065
     Dates: start: 20080916
  2. BEVACIZUMAB [Suspect]
     Route: 065
     Dates: start: 20080916
  3. ERLOTINIB [Suspect]
     Route: 065
     Dates: start: 20080916
  4. GEMCITABINE [Suspect]
     Route: 065
     Dates: start: 20080916

REACTIONS (2)
  - DEHYDRATION [None]
  - INTESTINAL OBSTRUCTION [None]
